FAERS Safety Report 7501223-5 (Version None)
Quarter: 2011Q2

REPORT INFORMATION
  Report Type: 
  Country: None (occurrence: None)
  Receive Date: 20110524
  Receipt Date: 20110512
  Transmission Date: 20111010
  Serious: Yes (Death)
  Sender: FDA-Public Use
  Company Number: JP-PFIZER INC-2011091185

PATIENT
  Age: 52 Year
  Sex: Male
  Weight: 70.5 kg

DRUGS (8)
  1. LEVOTHYROXINE SODIUM [Suspect]
     Indication: THYROID FUNCTION TEST ABNORMAL
     Dosage: 50 UG, 1X/DAY
     Route: 048
  2. OLMESARTAN MEDOXOMIL [Suspect]
     Indication: HYPERTENSION
     Dosage: 20 MG, 1X/DAY
     Route: 048
  3. OLMESARTAN MEDOXOMIL [Suspect]
     Dosage: 40 MG, 2X/DAY
     Dates: start: 20110107
  4. FLOMOX [Suspect]
     Indication: INFECTION PROPHYLAXIS
     Dosage: 20 MG, 2X/DAY
     Route: 048
  5. LOXONIN [Suspect]
     Indication: INFECTION PROPHYLAXIS
     Dosage: 20 MG, 2X/DAY
     Route: 048
  6. AXITINIB [Suspect]
     Indication: METASTATIC RENAL CELL CARCINOMA
     Dosage: 5 MG, 2X/DAY
     Route: 048
     Dates: start: 20101126, end: 20110110
  7. NORVASC [Suspect]
     Indication: HYPERTENSION
     Dosage: 5 MG, 1X/DAY
  8. AXITINIB [Suspect]
     Dosage: 3 MG, 2X/DAY
     Route: 048
     Dates: start: 20110114, end: 20110425

REACTIONS (1)
  - CIRCULATORY COLLAPSE [None]
